FAERS Safety Report 5913874-X (Version None)
Quarter: 2008Q4

REPORT INFORMATION
  Report Type: 
  Country: None (occurrence: None)
  Receive Date: 20081009
  Receipt Date: 20081002
  Transmission Date: 20090506
  Serious: Yes (Other)
  Sender: FDA-Public Use
  Company Number: B0511217A

PATIENT
  Age: 82 Year
  Sex: Male

DRUGS (9)
  1. SAWACILLIN [Suspect]
     Route: 048
     Dates: start: 20070929, end: 20071005
  2. RABEPRAZOLE SODIUM [Concomitant]
     Route: 065
     Dates: start: 20070929, end: 20071005
  3. CLARITHROMYCIN [Concomitant]
     Route: 065
     Dates: start: 20070929, end: 20071005
  4. RABEPRAZOLE SODIUM [Concomitant]
     Route: 065
     Dates: start: 20071006, end: 20071101
  5. FAMOGAST [Concomitant]
     Route: 065
     Dates: start: 20071102, end: 20080107
  6. SELBEX [Concomitant]
     Route: 065
     Dates: start: 20071102, end: 20080107
  7. SHINLUCK [Concomitant]
     Route: 065
     Dates: start: 20070929, end: 20080107
  8. AMLODIPINE [Concomitant]
     Route: 065
     Dates: start: 20070929, end: 20080109
  9. MAGLAX [Concomitant]
     Route: 065
     Dates: start: 20070929, end: 20080107

REACTIONS (1)
  - GASTRIC CANCER [None]
